FAERS Safety Report 10075792 (Version 1)
Quarter: 2014Q2

REPORT INFORMATION
  Report Type: Report from Study
  Country: ES (occurrence: ES)
  Receive Date: 20140414
  Receipt Date: 20140414
  Transmission Date: 20141212
  Serious: Yes (Other)
  Sender: FDA-Public Use
  Company Number: ES-MILLENNIUM PHARMACEUTICALS, INC.-2014JNJ001794

PATIENT
  Sex: 0

DRUGS (3)
  1. VELCADE [Suspect]
     Indication: PLASMA CELL MYELOMA
     Route: 058
  2. THALIDOMIDE [Concomitant]
     Indication: PLASMA CELL MYELOMA
  3. DEXAMETHASONE [Concomitant]
     Indication: PLASMA CELL MYELOMA

REACTIONS (7)
  - Neutropenia [Unknown]
  - Neuropathy peripheral [Unknown]
  - Plasma cell myeloma [Unknown]
  - Mucosal inflammation [Unknown]
  - Constipation [Unknown]
  - Bacterial infection [Unknown]
  - Disease recurrence [Unknown]
